FAERS Safety Report 9249083 (Version 1)
Quarter: 2013Q1

REPORT INFORMATION
  Report Type: Spontaneous
  Country: US (occurrence: None)
  Receive Date: 20130305
  Receipt Date: 20130305
  Transmission Date: 20140127
  Serious: Yes (Hospitalization, Other)
  Sender: FDA-Public Use
  Company Number: 163-21880-12061279

PATIENT
  Age: 81 Year
  Sex: Female
  Weight: 134 kg

DRUGS (1)
  1. REVLIMID [Suspect]
     Indication: PLASMA CELL MYELOMA
     Dosage: 20 MG, 2 IN 1 D
     Route: 048
     Dates: start: 20120221

REACTIONS (7)
  - Chest pain [None]
  - Hypoaesthesia [None]
  - Tremor [None]
  - Asthenia [None]
  - Contusion [None]
  - Dyspepsia [None]
  - Full blood count decreased [None]
